FAERS Safety Report 7928709 (Version 11)
Quarter: 2015Q3

REPORT INFORMATION
  Report Type: Spontaneous
  Country: US (occurrence: US)
  Receive Date: 20110503
  Receipt Date: 20150803
  Transmission Date: 20151125
  Serious: Yes (Hospitalization, Disabling, Other)
  Sender: FDA-Public Use
  Company Number: US-009507513-1104USA03486

PATIENT
  Sex: Female

DRUGS (9)
  1. FOSAMAX [Suspect]
     Active Substance: ALENDRONATE SODIUM
     Dosage: 70 MG, QW
     Route: 048
     Dates: start: 201012
  2. ASCORBIC ACID. [Concomitant]
     Active Substance: ASCORBIC ACID
     Indication: ROUTINE HEALTH MAINTENANCE
     Dosage: UNK UNK, QD
     Route: 048
     Dates: start: 1993
  3. FOSAMAX [Suspect]
     Active Substance: ALENDRONATE SODIUM
     Indication: OSTEOPOROSIS
     Dosage: 70 MG, UNK
     Route: 048
     Dates: start: 20090413, end: 20110620
  4. FOSAMAX [Suspect]
     Active Substance: ALENDRONATE SODIUM
     Indication: OSTEOPOROSIS
     Dosage: 70 MG, QW
     Route: 048
     Dates: start: 199603, end: 200704
  5. COD LIVER OIL [Concomitant]
     Active Substance: COD LIVER OIL
     Indication: ROUTINE HEALTH MAINTENANCE
     Dosage: UNK UNK, QD
     Route: 048
     Dates: start: 1993
  6. ACTONEL [Suspect]
     Active Substance: RISEDRONATE SODIUM
     Indication: OSTEOPOROSIS
     Dosage: 35 MG, QW
     Route: 048
     Dates: start: 200705, end: 200708
  7. FOSAMAX [Suspect]
     Active Substance: ALENDRONATE SODIUM
     Dosage: 10 MG, UNK
     Route: 048
     Dates: start: 20020301, end: 20030818
  8. FOSAMAX [Suspect]
     Active Substance: ALENDRONATE SODIUM
     Dosage: 40 MG, UNK
     Route: 048
     Dates: start: 20010326, end: 20040923
  9. MK-9278 [Concomitant]
     Active Substance: VITAMINS
     Indication: ROUTINE HEALTH MAINTENANCE
     Dosage: UNK UNK, QD
     Route: 048
     Dates: start: 1993

REACTIONS (69)
  - Hypovolaemia [Recovered/Resolved]
  - Tachycardia [Recovered/Resolved]
  - Atrial tachycardia [Recovered/Resolved]
  - Chronic obstructive pulmonary disease [Unknown]
  - Constipation [Unknown]
  - Femur fracture [Unknown]
  - Fall [Unknown]
  - Calcium deficiency [Unknown]
  - Pain [Unknown]
  - Tachycardia [Recovered/Resolved]
  - Abdominal pain [Recovered/Resolved]
  - Sepsis [Recovering/Resolving]
  - Pneumonia [Recovering/Resolving]
  - Chronic obstructive pulmonary disease [Recovering/Resolving]
  - Tibia fracture [Unknown]
  - Viral infection [Unknown]
  - Self-induced vomiting [Unknown]
  - Pneumonia [Unknown]
  - Oedema peripheral [Unknown]
  - Contusion [Unknown]
  - Hypokalaemia [Recovered/Resolved]
  - Palpitations [Recovered/Resolved]
  - Systemic inflammatory response syndrome [Recovered/Resolved]
  - Chronic obstructive pulmonary disease [Recovered/Resolved]
  - Oedema peripheral [Unknown]
  - Chronic obstructive pulmonary disease [Recovering/Resolving]
  - Haemorrhoids [Unknown]
  - Pneumonia [Unknown]
  - Fall [Unknown]
  - Spinal fracture [Unknown]
  - Asthma [Unknown]
  - Haematocrit decreased [Recovering/Resolving]
  - Emphysema [Unknown]
  - Angina pectoris [Recovered/Resolved]
  - Bronchitis [Recovered/Resolved]
  - Laceration [Unknown]
  - Adverse drug reaction [Unknown]
  - Psychotic disorder [Unknown]
  - Pneumonia [Unknown]
  - Breast disorder [Unknown]
  - Injury [Unknown]
  - Ankle fracture [Unknown]
  - Anaemia [Recovering/Resolving]
  - Acute respiratory failure [Recovering/Resolving]
  - Insomnia [Unknown]
  - Spinal compression fracture [Unknown]
  - Fall [Unknown]
  - Oedema peripheral [Unknown]
  - Pulmonary fibrosis [Unknown]
  - Respiratory failure [Unknown]
  - Hallucination [Unknown]
  - Tooth disorder [Unknown]
  - Dehydration [Recovered/Resolved]
  - Dacryostenosis acquired [Unknown]
  - Weight increased [Unknown]
  - Chronic obstructive pulmonary disease [Unknown]
  - Gastrooesophageal reflux disease [Unknown]
  - Femoral hernia repair [Unknown]
  - Hiatus hernia [Unknown]
  - Osteoarthritis [Unknown]
  - Spinal fracture [Unknown]
  - Haemoglobin decreased [Recovered/Resolved]
  - Non-cardiac chest pain [Unknown]
  - Rhinitis allergic [Unknown]
  - Vitamin D deficiency [Unknown]
  - Chronic obstructive pulmonary disease [Unknown]
  - Atrial tachycardia [Recovering/Resolving]
  - Melanocytic naevus [Unknown]
  - Fibula fracture [Unknown]

NARRATIVE: CASE EVENT DATE: 1996
